FAERS Safety Report 8343694-0 (Version None)
Quarter: 2012Q2

REPORT INFORMATION
  Report Type: 
  Country: None (occurrence: None)
  Receive Date: 20120508
  Receipt Date: 20120502
  Transmission Date: 20120825
  Serious: Yes (Hospitalization, Other)
  Sender: FDA-Public Use
  Company Number: US-AMGEN-USASP2012027769

PATIENT
  Age: 63 Year
  Sex: Male

DRUGS (1)
  1. ENBREL [Suspect]
     Indication: RHEUMATOID ARTHRITIS
     Dosage: UNK
     Dates: start: 20110325, end: 20120201

REACTIONS (4)
  - CARPAL TUNNEL SYNDROME [None]
  - EXOSTOSIS [None]
  - RHEUMATOID ARTHRITIS [None]
  - INFLUENZA [None]
